FAERS Safety Report 18368264 (Version 3)
Quarter: 2021Q3

REPORT INFORMATION
  Report Type: Spontaneous
  Country: FR (occurrence: FR)
  Receive Date: 20201009
  Receipt Date: 20210818
  Transmission Date: 20211014
  Serious: Yes (Other)
  Sender: FDA-Public Use
  Company Number: FR-009507513-2010FRA001782

PATIENT
  Age: 12 Year
  Sex: Male
  Weight: 43.6 kg

DRUGS (9)
  1. ONDANSETRON ACCORD [Concomitant]
     Active Substance: ONDANSETRON
     Dosage: CONCENTRATION 2 MG/ML
  2. ETOPOSIDE. [Concomitant]
     Active Substance: ETOPOSIDE
     Dosage: UNK
  3. MESNA. [Concomitant]
     Active Substance: MESNA
     Dosage: CONCENTRATION 100 MG/ML
  4. HOLOXAN [Suspect]
     Active Substance: IFOSFAMIDE
     Dosage: 1 DOSAGE FORM, 1 TOTAL, LYOPHILISATE FOR SOLUTION FOR INJECTION
     Route: 042
     Dates: start: 20200921, end: 20200921
  5. METHYLPREDNISOLONE. [Concomitant]
     Active Substance: METHYLPREDNISOLONE
     Dosage: UNK
  6. PLITICAN [Concomitant]
     Active Substance: ALIZAPRIDE HYDROCHLORIDE
     Dosage: INJECTABLE SOLUTION
  7. EMEND [Suspect]
     Active Substance: APREPITANT
     Indication: OSTEOSARCOMA METASTATIC
     Dosage: 800 MILLIGRAM
     Route: 048
     Dates: start: 20200831
  8. HOLOXAN [Suspect]
     Active Substance: IFOSFAMIDE
     Indication: OSTEOSARCOMA METASTATIC
     Dosage: 1 DOSAGE FORM, LYOPHILISATE FOR SOLUTION FOR INJECTION
     Route: 041
     Dates: start: 20200831, end: 20200903
  9. PARACETAMOL B.BRAUN [Concomitant]
     Active Substance: ACETAMINOPHEN
     Dosage: CONCENTRATION 10 MG/ML

REACTIONS (1)
  - Encephalopathy [Recovered/Resolved]

NARRATIVE: CASE EVENT DATE: 20200902
